FAERS Safety Report 6922740-2 (Version None)
Quarter: 2010Q3

REPORT INFORMATION
  Report Type: 
  Country: None (occurrence: None)
  Receive Date: 20100813
  Receipt Date: 20100809
  Transmission Date: 20110219
  Serious: Yes (Other)
  Sender: FDA-Public Use
  Company Number: US-SP-2010-04288

PATIENT
  Age: 20 Year
  Sex: Female

DRUGS (3)
  1. TUBERSOL [Suspect]
     Indication: TUBERCULIN TEST
     Route: 065
     Dates: start: 20100622, end: 20100622
  2. HPV RL1 6 11 16 18 VLP [Suspect]
     Indication: IMMUNISATION
     Route: 030
     Dates: start: 20100622, end: 20100622
  3. HAVRIX [Suspect]
     Indication: IMMUNISATION
     Route: 065
     Dates: start: 20100622, end: 20100622

REACTIONS (5)
  - CONVULSION [None]
  - DYSKINESIA [None]
  - EYE ROLLING [None]
  - FEELING ABNORMAL [None]
  - MUSCLE SPASTICITY [None]
